FAERS Safety Report 4516838-6 (Version None)
Quarter: 2004Q4

REPORT INFORMATION
  Report Type: 
  Country: None (occurrence: None)
  Receive Date: 20041202
  Receipt Date: 20041028
  Transmission Date: 20050328
  Serious: Yes (Other)
  Sender: FDA-Public Use
  Company Number: AU-GLAXOSMITHKLINE-B0350118A

PATIENT
  Age: 66 Year
  Sex: Female
  Weight: 81.2 kg

DRUGS (12)
  1. ZYBAN [Suspect]
     Indication: TOBACCO ABUSE
     Dosage: 150MG TWICE PER DAY
     Route: 048
     Dates: start: 20041019, end: 20041028
  2. CARTIA XT [Concomitant]
     Dosage: 1TAB PER DAY
     Route: 048
  3. ACTONEL [Concomitant]
     Route: 048
  4. BRICANYL [Concomitant]
     Route: 055
  5. CALTRATE [Concomitant]
  6. NAPROSYN [Concomitant]
     Dosage: 1G PER DAY
  7. PANAMAX [Concomitant]
  8. SINEQUAN [Concomitant]
  9. SPIRIVA [Concomitant]
  10. SYMBICORT [Concomitant]
  11. OSTELIN (VITAMIN D2) [Concomitant]
  12. VAGIFEM [Concomitant]

REACTIONS (2)
  - CONTUSION [None]
  - VASCULITIS [None]
